FAERS Safety Report 4936572-8 (Version None)
Quarter: 2006Q1

REPORT INFORMATION
  Report Type: 
  Country: None (occurrence: None)
  Receive Date: 20060307
  Receipt Date: 20051031
  Transmission Date: 20060701
  Serious: Yes (Hospitalization, Other)
  Sender: FDA-Public Use
  Company Number: US-MERCK-0511USA00251

PATIENT
  Age: 52 Year
  Sex: Female

DRUGS (18)
  1. VIOXX [Suspect]
     Indication: ARTHRALGIA
     Route: 048
     Dates: start: 20020501, end: 20031029
  2. VIOXX [Suspect]
     Indication: PAIN IN EXTREMITY
     Route: 048
     Dates: start: 20020501, end: 20031029
  3. TOPROL-XL [Concomitant]
     Route: 048
  4. LIPITOR [Concomitant]
     Route: 048
  5. VERAPAMIL [Concomitant]
     Route: 048
  6. GLUCOPHAGE [Concomitant]
     Route: 048
  7. CAPTOPRIL MSD [Concomitant]
     Route: 048
  8. ACIPHEX [Concomitant]
     Route: 048
  9. PAXIL [Concomitant]
     Route: 048
     Dates: start: 19921201
  10. CLONAZEPAM [Concomitant]
     Route: 065
  11. PRILOSEC [Concomitant]
     Route: 048
  12. SEROQUEL [Concomitant]
     Route: 048
     Dates: start: 19921201
  13. HUMULIN [Concomitant]
     Route: 065
  14. HUMULIN [Concomitant]
     Route: 065
  15. PREVACID [Concomitant]
     Route: 065
  16. ALBUTEROL [Concomitant]
     Route: 065
  17. ASPIRIN [Concomitant]
     Route: 065
     Dates: start: 19980101
  18. ACTOS [Concomitant]
     Indication: DIABETES MELLITUS
     Route: 065

REACTIONS (36)
  - ABDOMINAL PAIN [None]
  - ABDOMINAL PAIN UPPER [None]
  - ACUTE CORONARY SYNDROME [None]
  - ARTERIOSCLEROSIS CORONARY ARTERY [None]
  - ASTHMA [None]
  - ATRIAL FIBRILLATION [None]
  - BLOOD TRIGLYCERIDES INCREASED [None]
  - BODY TEMPERATURE INCREASED [None]
  - BRADYCARDIA [None]
  - CARDIAC FAILURE CONGESTIVE [None]
  - CARDIOMEGALY [None]
  - CATHETER SITE HAEMORRHAGE [None]
  - CHEST PAIN [None]
  - CORONARY ARTERY DISEASE [None]
  - CORONARY ARTERY STENOSIS [None]
  - DEHYDRATION [None]
  - DYSPNOEA [None]
  - EFFUSION [None]
  - EYE HAEMORRHAGE [None]
  - FLANK PAIN [None]
  - GRANULOMA [None]
  - HAEMANGIOMA [None]
  - HEART RATE ABNORMAL [None]
  - HEPATIC CIRRHOSIS [None]
  - HERNIA [None]
  - HOSPITALISATION [None]
  - HYPERKALAEMIA [None]
  - HYPERTENSION [None]
  - HYPOGLYCAEMIA [None]
  - HYPOMAGNESAEMIA [None]
  - HYPOTHYROIDISM [None]
  - MYOCARDIAL INFARCTION [None]
  - PERICARDIAL EFFUSION [None]
  - RENAL FAILURE [None]
  - SWELLING [None]
  - SYNCOPE VASOVAGAL [None]
